FAERS Safety Report 6404889-6 (Version None)
Quarter: 2009Q4

REPORT INFORMATION
  Report Type: 
  Country: None (occurrence: None)
  Receive Date: 20091019
  Receipt Date: 20091008
  Transmission Date: 20100525
  Serious: No
  Sender: FDA-Public Use
  Company Number: US-TEVA-210184USA

PATIENT
  Sex: Female

DRUGS (2)
  1. CLARAVIS [Suspect]
     Route: 048
     Dates: start: 20090729, end: 20090921
  2. YAZ [Concomitant]
     Indication: CONTRACEPTION
     Route: 048
     Dates: start: 20090906

REACTIONS (2)
  - METRORRHAGIA [None]
  - PREGNANCY TEST FALSE POSITIVE [None]
